FAERS Safety Report 6522424-9 (Version None)
Quarter: 2009Q4

REPORT INFORMATION
  Report Type: 
  Country: None (occurrence: None)
  Receive Date: 20091230
  Receipt Date: 20091218
  Transmission Date: 20100525
  Serious: Yes (Hospitalization)
  Sender: FDA-Public Use
  Company Number: HOAFF36513

PATIENT
  Age: 7 Year
  Sex: Male

DRUGS (1)
  1. RISPERIDONE [Suspect]
     Indication: ATTENTION DEFICIT/HYPERACTIVITY DISORDER
     Route: 048

REACTIONS (4)
  - CONDITION AGGRAVATED [None]
  - DYSTONIA [None]
  - ELECTROCARDIOGRAM QT PROLONGED [None]
  - SINUS ARRHYTHMIA [None]
